FAERS Safety Report 17881932 (Version 6)
Quarter: 2020Q3

REPORT INFORMATION
  Report Type: Spontaneous
  Country: FR (occurrence: FR)
  Receive Date: 20200610
  Receipt Date: 20200916
  Transmission Date: 20201103
  Serious: Yes (Hospitalization, Other)
  Sender: FDA-Public Use
  Company Number: FR-MYLANLABS-2020M1055343

PATIENT
  Age: 4 Day
  Sex: Male
  Weight: 2.03 kg

DRUGS (46)
  1. DOXORUBICIN [Interacting]
     Active Substance: DOXORUBICIN
     Dosage: 48 MILLIGRAM, QD
     Route: 064
  2. DOXORUBICIN [Interacting]
     Active Substance: DOXORUBICIN
     Dosage: 25 MG/M2 (IN 20 ML OF GLUCOSE 5 PERCENT ON DAY 1 AND DAY 15 OF THERAPY)
     Route: 064
     Dates: start: 20171108
  3. GLUCOSE [Suspect]
     Active Substance: DEXTROSE
     Dosage: 250 MILLILITER, (USED AS A VEHICLE FOR DACARBAZINE DRUG ADMINISTRATION)
     Route: 064
     Dates: start: 20171108
  4. SODIUM CHLORIDE. [Suspect]
     Active Substance: SODIUM CHLORIDE
     Indication: PRODUCT USED FOR UNKNOWN INDICATION
     Dosage: 20 MILLILITER
     Route: 064
     Dates: start: 20171108
  5. ONDANSETRON [Interacting]
     Active Substance: ONDANSETRON
     Indication: FOETAL EXPOSURE DURING PREGNANCY
     Dosage: 8 MILLIGRAM, BID
     Route: 064
     Dates: start: 2017, end: 201711
  6. PREDNISONE. [Interacting]
     Active Substance: PREDNISONE
     Dosage: UNK
     Route: 064
  7. AMOXICILLIN. [Interacting]
     Active Substance: AMOXICILLIN
     Indication: ANTIBIOTIC THERAPY
     Dosage: UNK
     Route: 064
  8. ENOXAPARIN [Interacting]
     Active Substance: ENOXAPARIN
     Indication: PRODUCT USED FOR UNKNOWN INDICATION
     Dosage: 4000 UI, BID
     Route: 064
     Dates: start: 2017
  9. VINBLASTINE [Interacting]
     Active Substance: VINBLASTINE
     Dosage: 5 MG/M2 (IN 20 ML NACL ON DAY 1 AND DAY 15 OF THERAPY)
     Route: 064
     Dates: start: 20171108
  10. DACARBAZINE. [Interacting]
     Active Substance: DACARBAZINE
     Dosage: AT DAY 1 AND 15 OF A 28?DAY CYCLE, CYCLICAL, STARTED AT WEEK 28 OF GESTATION
     Route: 064
     Dates: start: 20171108
  11. DOXORUBICIN [Interacting]
     Active Substance: DOXORUBICIN
     Dosage: AT DAY 1 AND 15 OF A 28?DAY CYCLE, CYCLICAL, STARTED AT WEEK 28 OF GESTATION
     Route: 064
     Dates: start: 20171108
  12. LANSOPRAZOLE. [Interacting]
     Active Substance: LANSOPRAZOLE
     Indication: PRODUCT USED FOR UNKNOWN INDICATION
     Dosage: MATERNAL DOSE 30 MG ONCE A DAY
     Route: 064
     Dates: start: 2017
  13. VINBLASTINE [Interacting]
     Active Substance: VINBLASTINE
     Dosage: 10 MILLIGRAM, QD
     Route: 064
  14. BLEOMYCIN [Interacting]
     Active Substance: BLEOMYCIN SULFATE
     Dosage: 19.2 MILLIGRAM, QD
     Route: 064
  15. SODIUM CHLORIDE. [Suspect]
     Active Substance: SODIUM CHLORIDE
     Dosage: 20 MILLILITER
     Route: 064
     Dates: start: 20171108
  16. CYCLOPHOSPHAMIDE. [Suspect]
     Active Substance: CYCLOPHOSPHAMIDE
     Indication: PRODUCT USED FOR UNKNOWN INDICATION
     Dosage: UNK
     Route: 064
  17. ONDANSETRON [Suspect]
     Active Substance: ONDANSETRON
     Indication: PROPHYLAXIS OF NAUSEA AND VOMITING
     Dosage: 8 MILLIGRAM, BID
     Route: 064
     Dates: start: 20171108, end: 201711
  18. VALACICLOVIR [Interacting]
     Active Substance: VALACYCLOVIR HYDROCHLORIDE
     Indication: PRODUCT USED FOR UNKNOWN INDICATION
     Dosage: MATERNAL DOSE 500 MG ONCE A DAY
     Route: 064
     Dates: start: 2017
  19. SODIUM CHLORIDE 0.9% [Interacting]
     Active Substance: SODIUM CHLORIDE
     Indication: HODGKIN^S DISEASE
     Dosage: 20 ML (USED AS A VEHICLE FOR VINBLASTIN DRUG ADMINISTRATION)
     Route: 064
     Dates: start: 20171108
  20. GLUCOSE [Interacting]
     Active Substance: DEXTROSE
     Dosage: 250 MILLILITER, QD
     Route: 064
  21. CAFFEINE. [Concomitant]
     Active Substance: CAFFEINE
     Dosage: UNK
     Route: 064
  22. RITUXIMAB. [Suspect]
     Active Substance: RITUXIMAB
     Indication: PRODUCT USED FOR UNKNOWN INDICATION
     Dosage: UNK
     Route: 064
  23. ONDANSETRON [Interacting]
     Active Substance: ONDANSETRON
     Dosage: UNK
     Route: 064
  24. BLEOMYCIN [Interacting]
     Active Substance: BLEOMYCIN SULFATE
     Indication: HODGKIN^S DISEASE
     Dosage: 10 MG/M2 QD (IN 20 ML NACL ON DAY 1 AND DAY 15 OF THERAPY)
     Route: 064
     Dates: start: 20171108
  25. BLEOMYCIN [Interacting]
     Active Substance: BLEOMYCIN SULFATE
     Dosage: AT DAY 1 AND 15 OF A 28?DAY CYCLE, CYCLICAL, STARTED AT WEEK 28 OF GESTATION
     Route: 064
     Dates: start: 20171108
  26. GLUCOSE [Interacting]
     Active Substance: DEXTROSE
     Indication: HODGKIN^S DISEASE
     Dosage: 20 MILLILITER, QD
     Route: 064
     Dates: start: 20171108
  27. PREDNISONE. [Interacting]
     Active Substance: PREDNISONE
     Dosage: 80 MG PER DAY
     Route: 064
     Dates: start: 2017
  28. VINBLASTINE [Interacting]
     Active Substance: VINBLASTINE
     Dosage: 5 MILLIGRAM/SQ. METER, QD
     Route: 064
     Dates: start: 20171108
  29. SODIUM CHLORIDE 0.9% [Interacting]
     Active Substance: SODIUM CHLORIDE
     Dosage: 20 ML (USED AS A VEHICLE FOR BLEOMYCIN DRUG ADMINISTRATION)
     Route: 064
     Dates: start: 20171108
  30. SODIUM CHLORIDE 0.9% [Interacting]
     Active Substance: SODIUM CHLORIDE
     Dosage: 20 ML (USED AS A VEHICLE FOR BLEOMYCIN DRUG ADMINISTRATION)
     Route: 064
     Dates: start: 20171108
  31. GLUCOSE [Suspect]
     Active Substance: DEXTROSE
     Indication: HODGKIN^S DISEASE
     Dosage: 20 MILLILITER (USED AS A VEHICLE FOR DOXORUBICIN DRUG ADMINISTRATION)
     Route: 064
     Dates: start: 20171108
  32. PREDNISONE. [Interacting]
     Active Substance: PREDNISONE
     Dosage: 80 MILLIGRAM, QD
     Route: 064
  33. PREDNISONE. [Interacting]
     Active Substance: PREDNISONE
     Dosage: 40 MG PER DAY FROM THE DIAGNOSIS UNTIL 1 WEEK AFTER THE FIRST ABVD
     Route: 064
     Dates: end: 201711
  34. ONDANSETRON [Interacting]
     Active Substance: ONDANSETRON
     Indication: PROPHYLAXIS OF NAUSEA AND VOMITING
     Dosage: UNK
     Route: 064
     Dates: end: 201711
  35. ONDANSETRON [Interacting]
     Active Substance: ONDANSETRON
     Indication: FOETAL EXPOSURE DURING PREGNANCY
     Dosage: 16 MILLIGRAM, QD
     Route: 064
     Dates: start: 20171108, end: 201711
  36. ENOXAPARIN [Interacting]
     Active Substance: ENOXAPARIN
     Dosage: MATERNAL DOSE: 4000 IU TWICE A DAY
     Route: 064
     Dates: start: 2017
  37. DEXAMETHASONE MYLAN [Suspect]
     Active Substance: DEXAMETHASONE
     Indication: PROPHYLAXIS OF NAUSEA AND VOMITING
     Dosage: UNK
     Route: 064
  38. DACARBAZINE. [Interacting]
     Active Substance: DACARBAZINE
     Dosage: 730 MILLIGRAM, QD
     Route: 064
     Dates: start: 20171108
  39. PREDNISONE. [Interacting]
     Active Substance: PREDNISONE
     Indication: PRODUCT USED FOR UNKNOWN INDICATION
     Dosage: 40 MG PER DAY
     Route: 064
     Dates: end: 201711
  40. DOXORUBICIN [Interacting]
     Active Substance: DOXORUBICIN
     Indication: HODGKIN^S DISEASE
     Dosage: 25 MG/M2 QD (IN 20 ML OF GLUCOSE 5% ON DAY 1 AND DAY 15 OF THERAPY)
     Route: 064
     Dates: start: 20171108
  41. DOXORUBICIN [Interacting]
     Active Substance: DOXORUBICIN
     Dosage: 50 MILLIGRAM/SQ. METER
     Route: 064
  42. DEXAMETHASONE MYLAN [Suspect]
     Active Substance: DEXAMETHASONE
     Indication: HODGKIN^S DISEASE
     Dosage: 10 MG (ON DAY1 AND DAY 15 OF THERAPY)
     Route: 064
     Dates: start: 20171108
  43. VINBLASTINE [Interacting]
     Active Substance: VINBLASTINE
     Indication: HODGKIN^S DISEASE
     Dosage: 5 MG/M2 (IN 20 ML NACL ON DAY 1 AND DAY 15 OF A 28?DAY CYCLE, STARTED AT WEEK 28 OF GESTATION
     Route: 064
     Dates: start: 20171108
  44. DACARBAZINE. [Interacting]
     Active Substance: DACARBAZINE
     Indication: HODGKIN^S DISEASE
     Dosage: 375 MG/M2 ( (IN 250 ML OF GLUCOSE 5% ON DAY1 AND DAY 15 OF THERAPY)
     Route: 064
     Dates: start: 20171108
  45. DACARBAZINE. [Interacting]
     Active Substance: DACARBAZINE
     Dosage: 375 MG/M2 ( (IN 250 ML OF GLUCOSE 5 PERCENT ON DAY1 AND DAY 15 OF THERAPY)
     Route: 064
     Dates: start: 20171108
  46. VINCRISTINE [Suspect]
     Active Substance: VINCRISTINE
     Indication: PRODUCT USED FOR UNKNOWN INDICATION
     Dosage: UNK
     Route: 064

REACTIONS (8)
  - Foetal exposure during pregnancy [Recovered/Resolved]
  - Off label use [Unknown]
  - Premature baby [Recovered/Resolved]
  - Cardiac dysfunction [Recovered/Resolved]
  - Cardiotoxicity [Recovered/Resolved]
  - Troponin increased [Recovered/Resolved]
  - Drug interaction [Recovered/Resolved]
  - Cardiomyopathy [Recovered/Resolved]

NARRATIVE: CASE EVENT DATE: 2017
